FAERS Safety Report 9344646 (Version 2)
Quarter: 2013Q4

REPORT INFORMATION
  Report Type: Spontaneous
  Country: JP (occurrence: JP)
  Receive Date: 20130612
  Receipt Date: 20131025
  Transmission Date: 20140711
  Serious: Yes (Hospitalization)
  Sender: FDA-Public Use
  Company Number: PHHY2013JP059082

PATIENT
  Age: 94 Year
  Sex: Female

DRUGS (9)
  1. DIOVAN [Suspect]
     Indication: HYPERTENSION
     Dosage: 40 MG, DAILY
     Route: 048
     Dates: end: 20130213
  2. ALDACTONE A [Concomitant]
     Indication: OEDEMA
     Dosage: 25 MG, UNK
     Route: 048
     Dates: start: 20130108, end: 20130213
  3. TAKEPRON [Concomitant]
     Dosage: 15 MG, UNK
     Route: 048
  4. NORVASC [Concomitant]
     Dosage: 5 MG/H, UNK
     Route: 048
  5. LASIX [Concomitant]
     Dosage: 20 MG, UNK
     Route: 048
  6. THYRADIN [Concomitant]
     Dosage: 12.5 MG, UNK
     Route: 048
  7. HERBESSER [Concomitant]
     Dosage: 100 MG, UNK
     Route: 048
  8. MAGMITT [Concomitant]
     Dosage: 1000 MG, UNK
     Route: 048
  9. MYSLEE [Concomitant]
     Dosage: 5 MG, UNK
     Route: 048

REACTIONS (2)
  - Arrhythmia [Recovering/Resolving]
  - Hyperkalaemia [Recovering/Resolving]
